FAERS Safety Report 10933733 (Version 2)
Quarter: 2015Q2

REPORT INFORMATION
  Report Type: Spontaneous
  Country: US (occurrence: US)
  Receive Date: 20150320
  Receipt Date: 20150410
  Transmission Date: 20150821
  Serious: Yes (Death)
  Sender: FDA-Public Use
  Company Number: US-ROCHE-1554006

PATIENT
  Age: 73 Year
  Sex: Female

DRUGS (6)
  1. CYTOXAN [Concomitant]
     Active Substance: CYCLOPHOSPHAMIDE
  2. PERJETA [Suspect]
     Active Substance: PERTUZUMAB
     Indication: BREAST CANCER
     Dosage: LAST DOSE: 13/AUG/2014
     Route: 042
     Dates: start: 20140611, end: 20140903
  3. ADRIAMYCIN [Suspect]
     Active Substance: DOXORUBICIN HYDROCHLORIDE
     Indication: BREAST CANCER
     Route: 042
     Dates: start: 20130911, end: 20131030
  4. TAXOL [Concomitant]
     Active Substance: PACLITAXEL
     Route: 065
     Dates: start: 20131120, end: 20140102
  5. TAXOTERE [Concomitant]
     Active Substance: DOCETAXEL
     Dosage: LAST DOSE: 13/AUG/2014
     Route: 065
     Dates: start: 20140611
  6. HERCEPTIN [Suspect]
     Active Substance: TRASTUZUMAB
     Indication: BREAST CANCER
     Dosage: LAST DOSE: 13/AUG/2014
     Route: 042
     Dates: start: 20140611, end: 20140903

REACTIONS (2)
  - Cardiac failure congestive [Fatal]
  - Tumour pain [Unknown]

NARRATIVE: CASE EVENT DATE: 20140903
